FAERS Safety Report 4476527-3 (Version None)
Quarter: 2004Q4

REPORT INFORMATION
  Report Type: 
  Country: None (occurrence: None)
  Receive Date: 20041013
  Receipt Date: 20040922
  Transmission Date: 20050328
  Serious: Yes (Other)
  Sender: FDA-Public Use
  Company Number: USA040979012

PATIENT
  Sex: Male
  Weight: 82 kg

DRUGS (1)
  1. XIGRIS [Suspect]
     Dosage: 20 MG/1 HOUR
     Dates: end: 20040922

REACTIONS (1)
  - MEDICATION ERROR [None]
